FAERS Safety Report 15172944 (Version 1)
Quarter: 2018Q3

REPORT INFORMATION
  Report Type: Spontaneous
  Country: US (occurrence: US)
  Receive Date: 20180720
  Receipt Date: 20180720
  Transmission Date: 20181010
  Serious: Yes (Other)
  Sender: FDA-Public Use
  Company Number: US-ROCHE-2020029

PATIENT
  Age: 83 Year
  Sex: Male

DRUGS (1)
  1. TNKASE [Suspect]
     Active Substance: TENECTEPLASE
     Indication: ISCHAEMIC STROKE
     Route: 065

REACTIONS (3)
  - Wrong drug administered [Unknown]
  - Cerebral haemorrhage [Unknown]
  - Abdominal wall haemorrhage [Unknown]

NARRATIVE: CASE EVENT DATE: 20171101
